FAERS Safety Report 10347417 (Version 1)
Quarter: 2014Q3

REPORT INFORMATION
  Report Type: Spontaneous
  Country: GB (occurrence: GB)
  Receive Date: 20140729
  Receipt Date: 20140729
  Transmission Date: 20150326
  Serious: Yes (Other)
  Sender: FDA-Public Use
  Company Number: GB-TEVA-495293ISR

PATIENT
  Age: 64 Year
  Sex: Female
  Weight: 67 kg

DRUGS (2)
  1. WARFARIN [Suspect]
     Active Substance: WARFARIN
  2. WHITE PEONY ROOT [Interacting]
     Active Substance: PAEONIA LACTIFLORA ROOT
     Dosage: DRUNK LOTS OF CUPS A DAY
     Route: 048
     Dates: start: 20140601, end: 20140628

REACTIONS (2)
  - Drug interaction [Unknown]
  - International normalised ratio abnormal [Recovered/Resolved]
